FAERS Safety Report 23084087 (Version 1)
Quarter: 2023Q4

REPORT INFORMATION
  Report Type: Spontaneous
  Country: US (occurrence: US)
  Receive Date: 20231019
  Receipt Date: 20231019
  Transmission Date: 20240110
  Serious: Yes (Hospitalization, Other)
  Sender: FDA-Public Use
  Company Number: US-SANDOZ-SDZ2023US043788

PATIENT
  Age: 32 Year
  Sex: Female

DRUGS (2)
  1. CEFIXIME [Suspect]
     Active Substance: CEFIXIME
     Indication: Subcutaneous abscess
     Dosage: UNK
     Route: 065
  2. NAPROXEN [Suspect]
     Active Substance: NAPROXEN
     Indication: Subcutaneous abscess
     Dosage: UNK
     Route: 065

REACTIONS (2)
  - Stevens-Johnson syndrome [Recovering/Resolving]
  - Product use in unapproved indication [Unknown]
